FAERS Safety Report 16702680 (Version 3)
Quarter: 2019Q3

REPORT INFORMATION
  Report Type: Spontaneous
  Country: US (occurrence: US)
  Receive Date: 20190814
  Receipt Date: 20190930
  Transmission Date: 20191004
  Serious: No
  Sender: FDA-Public Use
  Company Number: US-PFIZER INC-2019349194

PATIENT
  Age: 72 Year
  Sex: Female
  Weight: 73 kg

DRUGS (3)
  1. TURMERIC [CURCUMA LONGA] [Concomitant]
     Dosage: UNK
  2. CHANTIX [Suspect]
     Active Substance: VARENICLINE TARTRATE
     Indication: NICOTINE DEPENDENCE
     Dosage: ^0.5 MG X 11 AND 1 MG X 42^
     Route: 048
     Dates: start: 20190710, end: 2019
  3. REMIFEMIN [Concomitant]
     Active Substance: BLACK COHOSH
     Dosage: UNK

REACTIONS (5)
  - Vomiting [Recovered/Resolved]
  - Constipation [Recovered/Resolved]
  - Varicose vein [Recovered/Resolved]
  - Abdominal pain upper [Unknown]
  - Nausea [Recovered/Resolved]

NARRATIVE: CASE EVENT DATE: 20190722
